FAERS Safety Report 19667583 (Version 1)
Quarter: 2021Q3

REPORT INFORMATION
  Report Type: Spontaneous
  Country: CN (occurrence: CN)
  Receive Date: 20210806
  Receipt Date: 20210806
  Transmission Date: 20211014
  Serious: Yes (Other)
  Sender: FDA-Public Use
  Company Number: CN-ROCHE-2882619

PATIENT
  Age: 71 Year
  Sex: Male
  Weight: 70 kg

DRUGS (2)
  1. SODIUM CHLORIDE. [Concomitant]
     Active Substance: SODIUM CHLORIDE
     Indication: B-CELL SMALL LYMPHOCYTIC LYMPHOMA
     Route: 041
     Dates: start: 20210722, end: 20210722
  2. RITUXIMAB. [Suspect]
     Active Substance: RITUXIMAB
     Indication: B-CELL SMALL LYMPHOCYTIC LYMPHOMA
     Route: 041
     Dates: start: 20210722, end: 20210722

REACTIONS (3)
  - Off label use [Unknown]
  - Pruritus [Recovered/Resolved]
  - Oedema [Recovered/Resolved]

NARRATIVE: CASE EVENT DATE: 20210722
